FAERS Safety Report 15545920 (Version 2)
Quarter: 2019Q1

REPORT INFORMATION
  Report Type: Spontaneous
  Country: IT (occurrence: IT)
  Receive Date: 20181024
  Receipt Date: 20190128
  Transmission Date: 20190417
  Serious: Yes (Other)
  Sender: FDA-Public Use
  Company Number: IT-MYLANLABS-2017M1053079

PATIENT
  Age: 38 Year
  Sex: Female

DRUGS (5)
  1. FOLLICLE STIMULATING HORMONE, RECOMBINANT [Concomitant]
     Active Substance: FOLLITROPIN
     Indication: INTRADUCTAL PROLIFERATIVE BREAST LESION
     Dosage: 187.5 INTERNATIONAL UNIT, QD
  2. DECAPEPTYL                         /00975903/ [Suspect]
     Active Substance: TRIPTORELIN PAMOATE
     Indication: OVULATION INDUCTION
     Dosage: 0.2 MG, TOTAL
     Route: 040
  3. LETROZOLE. [Suspect]
     Active Substance: LETROZOLE
     Indication: CONTROLLED OVARIAN STIMULATION
     Dosage: UNK
  4. FOLLICLE STIMULATING HORMONE, RECOMBINANT [Concomitant]
     Active Substance: FOLLITROPIN
     Dosage: 150 INTERNATIONAL UNIT, QD
  5. LETROZOLE. [Suspect]
     Active Substance: LETROZOLE
     Indication: INTRADUCTAL PROLIFERATIVE BREAST LESION

REACTIONS (1)
  - Progesterone increased [Unknown]
